FAERS Safety Report 5181075-1 (Version None)
Quarter: 2006Q4

REPORT INFORMATION
  Report Type: 
  Country: None (occurrence: None)
  Receive Date: 20061220
  Receipt Date: 20061211
  Transmission Date: 20070319
  Serious: Yes (Other)
  Sender: FDA-Public Use
  Company Number: PHBS2006IE19105

PATIENT
  Age: 68 Year
  Sex: Female

DRUGS (3)
  1. DIOVAN [Suspect]
     Indication: HYPERTENSION
     Dosage: 80 MG/DAY
     Route: 048
     Dates: start: 20061003, end: 20061112
  2. CENTYL [Concomitant]
  3. ZOCOR [Concomitant]

REACTIONS (4)
  - ALOPECIA [None]
  - COUGH [None]
  - DIARRHOEA [None]
  - EYE DISORDER [None]
